FAERS Safety Report 6715989-5 (Version None)
Quarter: 2010Q2

REPORT INFORMATION
  Report Type: 
  Country: None (occurrence: None)
  Receive Date: 20100506
  Receipt Date: 20100506
  Transmission Date: 20101027
  Serious: No
  Sender: FDA-Public Use
  Company Number: None

PATIENT
  Age: 30 Year
  Sex: Female
  Weight: 52.1637 kg

DRUGS (1)
  1. KENALOG [Suspect]

REACTIONS (5)
  - DISCOMFORT [None]
  - INJECTION SITE REACTION [None]
  - PAIN [None]
  - SKIN DISCOLOURATION [None]
  - SKIN DISORDER [None]
